FAERS Safety Report 9507436 (Version 2)
Quarter: 2013Q4

REPORT INFORMATION
  Report Type: Spontaneous
  Country: US (occurrence: US)
  Receive Date: 20130909
  Receipt Date: 20131206
  Transmission Date: 20140711
  Serious: Yes (Other)
  Sender: FDA-Public Use
  Company Number: US-009507513-1309USA001184

PATIENT
  Age: 63 Year
  Sex: Male
  Weight: 87.75 kg

DRUGS (5)
  1. CLARITIN [Suspect]
     Indication: PRODUCT USED FOR UNKNOWN INDICATION
     Dosage: 10 MG, UNKNOWN
     Route: 048
  2. CLARITIN [Suspect]
     Indication: NASAL CONGESTION
  3. FOSAMAX [Concomitant]
     Indication: OSTEOPOROSIS
  4. VITAMINS (UNSPECIFIED) [Concomitant]
     Dosage: UNK, QD
  5. CALCIUM (UNSPECIFIED) (+) VITAMIN D (UNSPECIFIED) [Concomitant]
     Dosage: UNK, BID

REACTIONS (9)
  - Bladder cancer [Unknown]
  - Bladder neoplasm surgery [Unknown]
  - Prostatomegaly [Unknown]
  - Connective tissue inflammation [Recovered/Resolved]
  - Musculoskeletal discomfort [Recovered/Resolved]
  - Groin pain [Recovered/Resolved]
  - Off label use [Unknown]
  - Underdose [Unknown]
  - Wrong technique in drug usage process [Unknown]
